FAERS Safety Report 9656468 (Version 2)
Quarter: 2014Q2

REPORT INFORMATION
  Report Type: Spontaneous
  Country: DK (occurrence: CA)
  Receive Date: 20131030
  Receipt Date: 20140407
  Transmission Date: 20141212
  Serious: Yes (Other)
  Sender: FDA-Public Use
  Company Number: CA-FRI-1000050621

PATIENT
  Age: 34 Year
  Sex: Female

DRUGS (2)
  1. CELEXA [Suspect]
     Indication: POSTPARTUM DEPRESSION
     Dosage: 1 DF
     Route: 048
     Dates: start: 2011, end: 2012
  2. CELEXA [Suspect]
     Dosage: 1 DF
     Route: 048
     Dates: start: 2012, end: 2013

REACTIONS (4)
  - Abortion spontaneous [Unknown]
  - Haemorrhage [Unknown]
  - Uterine spasm [Unknown]
  - Exposure during pregnancy [Recovered/Resolved]
